FAERS Safety Report 7311626-X (Version None)
Quarter: 2011Q1

REPORT INFORMATION
  Report Type: 
  Country: None (occurrence: None)
  Receive Date: 20110224
  Receipt Date: 20110223
  Transmission Date: 20110831
  Serious: Yes (Disabling)
  Sender: FDA-Public Use
  Company Number: GB-EISAI INC-E2090-01499-SPO-GB

PATIENT
  Age: 26 Year
  Sex: Male

DRUGS (2)
  1. ZONISAMIDE [Suspect]
     Indication: EPILEPSY
     Dosage: 300 MG
     Route: 048
  2. EPILIM [Concomitant]

REACTIONS (1)
  - HALLUCINATIONS, MIXED [None]
